FAERS Safety Report 4695749-X (Version None)
Quarter: 2005Q2

REPORT INFORMATION
  Report Type: 
  Country: None (occurrence: None)
  Receive Date: 20050621
  Receipt Date: 20050613
  Transmission Date: 20051028
  Serious: Yes (Other)
  Sender: FDA-Public Use
  Company Number: US-BRISTOL-MYERS SQUIBB COMPANY-13007521

PATIENT
  Age: 45 Year
  Sex: Female

DRUGS (1)
  1. SERZONE [Suspect]
     Dates: start: 19950330, end: 20041010

REACTIONS (3)
  - HEPATIC CIRRHOSIS [None]
  - HEPATITIS C [None]
  - NEUROPATHY PERIPHERAL [None]
